FAERS Safety Report 20974855 (Version 2)
Quarter: 2022Q2

REPORT INFORMATION
  Report Type: Spontaneous
  Country: US (occurrence: US)
  Receive Date: 20220617
  Receipt Date: 20220621
  Transmission Date: 20220720
  Serious: No
  Sender: FDA-Public Use
  Company Number: US-NOVARTISTESTPH-NVSC2022US139603

PATIENT
  Sex: Female
  Weight: 61.678 kg

DRUGS (1)
  1. METHOTREXATE [Suspect]
     Active Substance: METHOTREXATE
     Indication: Juvenile idiopathic arthritis
     Dosage: 15 MG, QOD
     Route: 065

REACTIONS (9)
  - Osteoarthritis [Unknown]
  - Swelling [Unknown]
  - Pain [Unknown]
  - Heart rate increased [Unknown]
  - Panic attack [Unknown]
  - Dehydration [Unknown]
  - Jaw clicking [Unknown]
  - Anaemia [Unknown]
  - Arthralgia [Unknown]
